FAERS Safety Report 6984456-6 (Version None)
Quarter: 2010Q3

REPORT INFORMATION
  Report Type: 
  Country: None (occurrence: None)
  Receive Date: 20100827
  Receipt Date: 20100507
  Transmission Date: 20110219
  Serious: No
  Sender: FDA-Public Use
  Company Number: 011697

PATIENT
  Sex: Male
  Weight: 81.6 kg

DRUGS (4)
  1. LACOSAMIDE [Suspect]
     Indication: CONVULSION
     Dosage: (200MG ORAL)
     Route: 048
  2. TOPAMAX [Concomitant]
  3. PRIMIDONE [Concomitant]
  4. LAMICTAL [Concomitant]

REACTIONS (1)
  - MIGRAINE [None]
